FAERS Safety Report 6092566-3 (Version None)
Quarter: 2009Q1

REPORT INFORMATION
  Report Type: 
  Country: None (occurrence: None)
  Receive Date: 20090225
  Receipt Date: 20090202
  Transmission Date: 20090719
  Serious: Yes (Hospitalization, Other)
  Sender: FDA-Public Use
  Company Number: NZ-NOVOPROD-280000

PATIENT
  Age: 58 Year
  Sex: Male

DRUGS (9)
  1. NOVORAPID [Suspect]
     Indication: TYPE 1 DIABETES MELLITUS
     Route: 058
  2. PAROXETINE HCL [Suspect]
     Indication: DRUG USE FOR UNKNOWN INDICATION
     Route: 048
  3. CITALOPRAM HYDROBROMIDE [Suspect]
     Indication: DRUG USE FOR UNKNOWN INDICATION
     Route: 048
  4. VERAPAMIL [Concomitant]
  5. PROTAPHANE                         /00646002/ [Concomitant]
     Dosage: 16 UNITS NOCTE
  6. ACTRAPID                           /00646001/ [Concomitant]
     Dosage: 6/8 UNITS TDA
  7. PLAQUENIL                          /00072601/ [Concomitant]
  8. AUGMENTIN '125' [Concomitant]
  9. SIMVASTATIN [Concomitant]

REACTIONS (3)
  - HYPONATRAEMIA [None]
  - POLYDIPSIA [None]
  - URINARY TRACT INFECTION [None]
